FAERS Safety Report 13387024 (Version 1)
Quarter: 2017Q1

REPORT INFORMATION
  Report Type: Spontaneous
  Country: FR (occurrence: FR)
  Receive Date: 20170330
  Receipt Date: 20170330
  Transmission Date: 20170429
  Serious: Yes (Other)
  Sender: FDA-Public Use
  Company Number: FR-ALVOGEN-2017-ALVOGEN-091815

PATIENT
  Age: 51 Year
  Sex: Male
  Weight: 89 kg

DRUGS (6)
  1. FLUCONAZOLE. [Interacting]
     Active Substance: FLUCONAZOLE
     Indication: URINARY TRACT INFECTION
     Route: 042
     Dates: start: 20160422
  2. PREGABALIN. [Interacting]
     Active Substance: PREGABALIN
     Indication: PAIN
     Dosage: 200 MG X 2
     Route: 048
  3. FLUCONAZOLE. [Interacting]
     Active Substance: FLUCONAZOLE
     Indication: URINARY TRACT INFECTION
     Dates: start: 20160423
  4. OXYCODONE [Interacting]
     Active Substance: OXYCODONE
     Indication: PRODUCT USED FOR UNKNOWN INDICATION
     Dosage: IMMEDIATE RELEASE Q4H
  5. OXYCODONE [Suspect]
     Active Substance: OXYCODONE
     Indication: PAIN
     Dosage: SLOW RELEASE Q12H
     Dates: start: 20160412, end: 20160423
  6. DIAZEPAM. [Interacting]
     Active Substance: DIAZEPAM
     Indication: PAIN
     Route: 048

REACTIONS (2)
  - Drug interaction [Unknown]
  - Respiratory depression [Recovered/Resolved]
